FAERS Safety Report 10572667 (Version 1)
Quarter: 2014Q4

REPORT INFORMATION
  Report Type: Spontaneous
  Country: US (occurrence: None)
  Receive Date: 20141107
  Receipt Date: 20141107
  Transmission Date: 20150529
  Serious: No
  Sender: FDA-Public Use
  Company Number: None

PATIENT
  Age: 77 Year
  Sex: Female

DRUGS (1)
  1. BOTOX [Suspect]
     Active Substance: ONABOTULINUMTOXINA
     Indication: BLEPHAROSPASM
     Dosage: 200 UNITS; EVERY 3 MONTHS
     Route: 030
     Dates: start: 201405, end: 201406

REACTIONS (2)
  - Injection site bruising [None]
  - Injection site swelling [None]

NARRATIVE: CASE EVENT DATE: 201405
